FAERS Safety Report 6255654-4 (Version None)
Quarter: 2009Q3

REPORT INFORMATION
  Report Type: 
  Country: None (occurrence: None)
  Receive Date: 20090701
  Receipt Date: 20090615
  Transmission Date: 20100115
  Serious: Yes (Hospitalization, Disabling, Other)
  Sender: FDA-Public Use
  Company Number: ZYD-09-AE-067

PATIENT
  Age: 40 Year
  Sex: Female

DRUGS (2)
  1. PAROXETINE HCL [Suspect]
     Indication: ANXIETY
     Dosage: 1 TABLET, DAILY, ORAL
     Route: 048
  2. BC POWDER [Concomitant]

REACTIONS (19)
  - AGGRESSION [None]
  - BLOOD PRESSURE FLUCTUATION [None]
  - CONFUSIONAL STATE [None]
  - CONVERSION DISORDER [None]
  - DIZZINESS [None]
  - DYSARTHRIA [None]
  - DYSPNOEA [None]
  - FRONTAL LOBE EPILEPSY [None]
  - HALLUCINATION [None]
  - HYPERHIDROSIS [None]
  - MIGRAINE [None]
  - NAUSEA [None]
  - PARAESTHESIA [None]
  - PERSONALITY CHANGE [None]
  - PRURITUS [None]
  - STRESS [None]
  - TIC [None]
  - TREMOR [None]
  - VOMITING [None]
